FAERS Safety Report 23503861 (Version 3)
Quarter: 2024Q4

REPORT INFORMATION
  Report Type: Spontaneous
  Country: JP (occurrence: JP)
  Receive Date: 20240209
  Receipt Date: 20241029
  Transmission Date: 20250115
  Serious: Yes (Other)
  Sender: JOHNSON AND JOHNSON
  Company Number: JP-JNJFOC-20210554530

PATIENT
  Age: 27 Year
  Sex: Female

DRUGS (10)
  1. RISPERDAL [Suspect]
     Active Substance: RISPERIDONE
     Indication: Schizophrenia
     Dosage: AT BEDTIME
     Route: 048
     Dates: start: 201112, end: 20111207
  2. RISPERDAL [Suspect]
     Active Substance: RISPERIDONE
     Dosage: 18:00 IN THE EVENING
     Route: 048
     Dates: start: 20111208, end: 20111208
  3. RISPERDAL [Suspect]
     Active Substance: RISPERIDONE
     Dosage: 18:00 IN THE EVENING
     Route: 048
     Dates: end: 20120104
  4. RISPERDAL [Suspect]
     Active Substance: RISPERIDONE
     Route: 048
     Dates: start: 20120105, end: 20120215
  5. RISPERDAL [Suspect]
     Active Substance: RISPERIDONE
     Route: 048
     Dates: start: 20120216, end: 20120229
  6. RISPERDAL [Suspect]
     Active Substance: RISPERIDONE
     Dosage: IN THE MORNING AND EVENING
     Route: 048
     Dates: start: 20120301, end: 20120321
  7. RISPERDAL [Suspect]
     Active Substance: RISPERIDONE
     Route: 048
     Dates: start: 2014
  8. PEROSPIRONE HYDROCHLORIDE [Suspect]
     Active Substance: PEROSPIRONE HYDROCHLORIDE
     Indication: Schizophrenia
     Dosage: DOSE UNKNOWN
     Route: 048
     Dates: start: 20120322, end: 20120418
  9. PEROSPIRONE HYDROCHLORIDE [Suspect]
     Active Substance: PEROSPIRONE HYDROCHLORIDE
     Indication: Schizophrenia
     Route: 048
     Dates: start: 20120419
  10. PEROSPIRONE HYDROCHLORIDE [Suspect]
     Active Substance: PEROSPIRONE HYDROCHLORIDE
     Dosage: DOSE UNKNOWNGRADUALLY DECREASED
     Route: 048
     Dates: end: 2015

REACTIONS (42)
  - Ileus [Unknown]
  - Loss of consciousness [Unknown]
  - Encephalitis [Unknown]
  - Neuroleptic malignant syndrome [Unknown]
  - Weight increased [Recovered/Resolved]
  - Renal impairment [Unknown]
  - Hyperprolactinaemia [Unknown]
  - Paralysis [Unknown]
  - Quadriplegia [Unknown]
  - Feeling abnormal [Unknown]
  - Nausea [Unknown]
  - Dysphonia [Unknown]
  - Bedridden [Unknown]
  - Headache [Unknown]
  - Dyspnoea [Recovered/Resolved]
  - Anaemia [Unknown]
  - Abdominal pain upper [Unknown]
  - Abdominal discomfort [Unknown]
  - Thyroid disorder [Unknown]
  - Pain [Unknown]
  - Malaise [Unknown]
  - Increased appetite [Recovered/Resolved]
  - Allergy to chemicals [Unknown]
  - Hepatic function abnormal [Unknown]
  - Somnolence [Unknown]
  - Palpitations [Unknown]
  - Musculoskeletal stiffness [Unknown]
  - Dizziness [Recovered/Resolved]
  - Hypoaesthesia [Recovered/Resolved]
  - Memory impairment [Unknown]
  - Dysstasia [Unknown]
  - Hypoaesthesia [Unknown]
  - Poverty of speech [Unknown]
  - Ageusia [Unknown]
  - Dyspepsia [Unknown]
  - Dyschezia [Unknown]
  - Renal pain [Unknown]
  - Neuralgia [Unknown]
  - Muscular weakness [Unknown]
  - Temperature regulation disorder [Unknown]
  - Inappropriate schedule of product administration [Unknown]
  - Off label use [Unknown]

NARRATIVE: CASE EVENT DATE: 20111208
